FAERS Safety Report 25699487 (Version 1)
Quarter: 2025Q3

REPORT INFORMATION
  Report Type: Spontaneous
  Country: US (occurrence: US)
  Receive Date: 20250819
  Receipt Date: 20250819
  Transmission Date: 20251021
  Serious: No
  Sender: JOHNSON AND JOHNSON
  Company Number: US-JNJFOC-20250821110

PATIENT
  Sex: Male

DRUGS (2)
  1. SPRAVATO [Suspect]
     Active Substance: ESKETAMINE
     Indication: Product used for unknown indication
     Route: 045
  2. SPRAVATO [Suspect]
     Active Substance: ESKETAMINE
     Dosage: EVERY EIGHT WEEK
     Route: 045

REACTIONS (5)
  - Diplopia [Unknown]
  - Vertigo [Unknown]
  - Dysarthria [Unknown]
  - Off label use [Unknown]
  - Emergency care examination [Unknown]
